FAERS Safety Report 25958136 (Version 1)
Quarter: 2025Q4

REPORT INFORMATION
  Report Type: Spontaneous
  Country: CO (occurrence: CO)
  Receive Date: 20251024
  Receipt Date: 20251024
  Transmission Date: 20260118
  Serious: Yes (Death)
  Sender: NOVARTIS
  Company Number: CO-002147023-NVSC2025CO164513

PATIENT
  Age: 59 Year
  Sex: Male

DRUGS (3)
  1. PAZOPANIB [Suspect]
     Active Substance: PAZOPANIB
     Indication: Pulmonary artery intimal sarcoma
     Dosage: UNK
     Route: 065
  2. GEMCITABINE [Concomitant]
     Active Substance: GEMCITABINE
     Indication: Pulmonary artery intimal sarcoma
     Dosage: UNK
     Route: 065
  3. CYCLOPHOSPHAMIDE [Concomitant]
     Active Substance: CYCLOPHOSPHAMIDE
     Indication: Product used for unknown indication
     Dosage: UNK
     Route: 065

REACTIONS (8)
  - Drug intolerance [Fatal]
  - Purpura [Fatal]
  - Acute kidney injury [Fatal]
  - Glomerulonephritis [Fatal]
  - Disease progression [Fatal]
  - Respiratory failure [Fatal]
  - Paraneoplastic syndrome [Fatal]
  - Off label use [Unknown]
